FAERS Safety Report 15407805 (Version 4)
Quarter: 2019Q2

REPORT INFORMATION
  Report Type: Spontaneous
  Country: CN (occurrence: CN)
  Receive Date: 20180920
  Receipt Date: 20190620
  Transmission Date: 20190711
  Serious: Yes (Other)
  Sender: FDA-Public Use
  Company Number: CN-PFIZER INC-2018379124

PATIENT
  Age: 86 Year
  Sex: Male

DRUGS (5)
  1. ORNIDAZOLE [Concomitant]
     Active Substance: ORNIDAZOLE
     Dosage: 0.5 G, 2X/DAY
  2. NIMODIPINE. [Concomitant]
     Active Substance: NIMODIPINE
     Dosage: UNK
  3. INSULIN [Concomitant]
     Active Substance: INSULIN NOS
     Dosage: UNK
     Route: 058
  4. MEPEM [Suspect]
     Active Substance: MEROPENEM
     Indication: INFECTION
     Dosage: 1 G, 3X/DAY (INTRAVENOUSLY PUMPED (PUMP TIME: 1.5 HOURS)
     Route: 042
     Dates: start: 201506, end: 201506
  5. GLUCOBAY [Concomitant]
     Active Substance: ACARBOSE
     Dosage: UNK

REACTIONS (1)
  - Telangiectasia [Recovered/Resolved]

NARRATIVE: CASE EVENT DATE: 201506
